FAERS Safety Report 8571227-2 (Version None)
Quarter: 2012Q3

REPORT INFORMATION
  Report Type: 
  Country: None (occurrence: None)
  Receive Date: 20120730
  Receipt Date: 20120730
  Transmission Date: 20120928
  Serious: No
  Sender: FDA-Public Use
  Company Number: None

PATIENT
  Age: 59 Year
  Sex: Male
  Weight: 140.9 kg

DRUGS (1)
  1. PACLITAXEL [Suspect]
     Indication: LUNG NEOPLASM MALIGNANT
     Dosage: 85 MG ONCE, IV
     Route: 042
     Dates: start: 20120622, end: 20120622

REACTIONS (3)
  - PRURITUS [None]
  - URTICARIA [None]
  - RASH [None]
